FAERS Safety Report 17115522 (Version 1)
Quarter: 2019Q4

REPORT INFORMATION
  Report Type: Spontaneous
  Country: US (occurrence: US)
  Receive Date: 20191112
  Receipt Date: 20191112
  Transmission Date: 20200122
  Serious: Yes (Hospitalization)
  Sender: FDA-Public Use
  Company Number: None

PATIENT
  Age: 68 Year
  Sex: Male
  Weight: 73.71 kg

DRUGS (2)
  1. LITHIUM. [Suspect]
     Active Substance: LITHIUM
     Indication: POST-TRAUMATIC STRESS DISORDER
     Route: 048
     Dates: start: 20190531, end: 20190607
  2. LISINOPRIL. [Suspect]
     Active Substance: LISINOPRIL
     Indication: HYPERTENSION
     Route: 048
     Dates: start: 20160514, end: 20190607

REACTIONS (4)
  - Mania [None]
  - Behaviour disorder [None]
  - Delusion of grandeur [None]
  - Acute kidney injury [None]

NARRATIVE: CASE EVENT DATE: 20190607
